FAERS Safety Report 16532820 (Version 1)
Quarter: 2019Q3

REPORT INFORMATION
  Report Type: Spontaneous
  Country: US (occurrence: US)
  Receive Date: 20190705
  Receipt Date: 20190705
  Transmission Date: 20191004
  Serious: Yes (Other)
  Sender: FDA-Public Use
  Company Number: US-PFIZER INC-2019284290

PATIENT
  Sex: Male

DRUGS (2)
  1. GENOTROPIN MQ [Suspect]
     Active Substance: SOMATROPIN
     Dosage: UNK
  2. GENOTROPIN MQ [Suspect]
     Active Substance: SOMATROPIN
     Dosage: 1.2 MG, 6 DAYS A WEEK
     Dates: start: 20181218

REACTIONS (8)
  - Ear infection [Unknown]
  - Insomnia [Unknown]
  - Decreased activity [Unknown]
  - Arthralgia [Unknown]
  - Body mass index increased [Unknown]
  - Pain in extremity [Unknown]
  - Thyroxine increased [Unknown]
  - Pharyngitis streptococcal [Unknown]
